FAERS Safety Report 7430769-3 (Version None)
Quarter: 2011Q2

REPORT INFORMATION
  Report Type: 
  Country: None (occurrence: None)
  Receive Date: 20110421
  Receipt Date: 20110419
  Transmission Date: 20111010
  Serious: Yes (Death, Hospitalization)
  Sender: FDA-Public Use
  Company Number: PHHY2011NL19561

PATIENT
  Sex: Female

DRUGS (3)
  1. ZOMETA [Suspect]
     Dosage: UNK
     Dates: start: 20110209
  2. ZOMETA [Suspect]
     Dosage: UNK
     Dates: start: 20110112
  3. ZOMETA [Suspect]
     Indication: BREAST CANCER METASTATIC
     Dosage: 4 MG/5 ML 1X PER 28 DAYS
     Dates: start: 20100527

REACTIONS (5)
  - URINARY TRACT INFECTION [None]
  - RESPIRATORY TRACT INFECTION [None]
  - DEATH [None]
  - PULMONARY OEDEMA [None]
  - DYSPNOEA [None]
